FAERS Safety Report 4510634-1 (Version None)
Quarter: 2004Q4

REPORT INFORMATION
  Report Type: 
  Country: None (occurrence: None)
  Receive Date: 20041122
  Receipt Date: 20041109
  Transmission Date: 20050328
  Serious: Yes (Hospitalization)
  Sender: FDA-Public Use
  Company Number: 6011540

PATIENT
  Age: 92 Year
  Sex: Female

DRUGS (7)
  1. BISOPROLOL FUMARATE [Suspect]
     Indication: CARDIAC FAILURE CONGESTIVE
     Dosage: 10 MG
     Route: 048
     Dates: start: 20031201
  2. ENALAPRIL MALEATE [Suspect]
     Indication: CARDIAC FAILURE CONGESTIVE
     Dosage: 5 MG
     Route: 048
     Dates: start: 20040524, end: 20041003
  3. SPIRONOLACTONE [Concomitant]
  4. DIGOXIN [Concomitant]
  5. COZAAR [Concomitant]
  6. FUROSEMIDE [Concomitant]
  7. ACENOCOUMAROL (ACENOCOUMAROL) [Concomitant]

REACTIONS (4)
  - BLOOD CREATININE INCREASED [None]
  - CIRCULATORY COLLAPSE [None]
  - DEHYDRATION [None]
  - HYPERKALAEMIA [None]
